FAERS Safety Report 4429436-X (Version None)
Quarter: 2004Q3

REPORT INFORMATION
  Report Type: 
  Country: None (occurrence: None)
  Receive Date: 20040816
  Receipt Date: 20040810
  Transmission Date: 20050211
  Serious: Yes (Hospitalization)
  Sender: FDA-Public Use
  Company Number: CAP04000211

PATIENT
  Age: 71 Year
  Sex: Female

DRUGS (3)
  1. ETIDRONATE DISODIUM [Suspect]
     Indication: OSTEOPOROSIS POSTMENOPAUSAL
     Dosage: 1 TABLET ONCE DAILY, ORAL
     Route: 048
     Dates: start: 20040621
  2. MULVITAMINS (THIAMINE HYDROCHLORIDE, RIBOFLAVIN, PANTHENOL, NICOTINAMI [Concomitant]
  3. GLUCOSAMINE (GLUCOSAMINE) [Concomitant]

REACTIONS (6)
  - BLOOD MAGNESIUM DECREASED [None]
  - CARDIAC FIBRILLATION [None]
  - ELECTROLYTE IMBALANCE [None]
  - FEELING ABNORMAL [None]
  - HEART RATE INCREASED [None]
  - PALPITATIONS [None]
